FAERS Safety Report 24654400 (Version 1)
Quarter: 2024Q4

REPORT INFORMATION
  Report Type: Spontaneous
  Country: SG (occurrence: SG)
  Receive Date: 20241122
  Receipt Date: 20241122
  Transmission Date: 20250115
  Serious: Yes (Other)
  Sender: TAKEDA
  Company Number: SG-TAKEDA-2024TUS115684

PATIENT
  Age: 30 Year
  Sex: Male

DRUGS (10)
  1. HUMAN IMMUNOGLOBULIN G [Suspect]
     Active Substance: HUMAN IMMUNOGLOBULIN G
     Indication: Dermatomyositis
     Dosage: UNK UNK, MONTHLY
  2. HUMAN IMMUNOGLOBULIN G [Suspect]
     Active Substance: HUMAN IMMUNOGLOBULIN G
     Indication: Interstitial lung disease
  3. BARICITINIB [Suspect]
     Active Substance: BARICITINIB
     Indication: Dermatomyositis
     Dosage: 2 MILLIGRAM
  4. BARICITINIB [Suspect]
     Active Substance: BARICITINIB
     Indication: Interstitial lung disease
  5. PREDNISOLONE [Suspect]
     Active Substance: PREDNISOLONE
     Indication: Dermatomyositis
     Dosage: 12.5 MILLIGRAM
  6. PREDNISOLONE [Suspect]
     Active Substance: PREDNISOLONE
     Indication: Interstitial lung disease
  7. TACROLIMUS [Suspect]
     Active Substance: TACROLIMUS
     Indication: Dermatomyositis
     Dosage: 2 MILLIGRAM
  8. TACROLIMUS [Suspect]
     Active Substance: TACROLIMUS
     Indication: Interstitial lung disease
  9. TOFACITINIB [Suspect]
     Active Substance: TOFACITINIB
     Indication: Dermatomyositis
     Dosage: 5 MILLIGRAM, BID
  10. TOFACITINIB [Suspect]
     Active Substance: TOFACITINIB
     Indication: Interstitial lung disease

REACTIONS (1)
  - Drug ineffective [Unknown]
